FAERS Safety Report 9230754 (Version 5)
Quarter: 2013Q4

REPORT INFORMATION
  Report Type: Report from Study
  Country: US (occurrence: US)
  Receive Date: 20130415
  Receipt Date: 20131209
  Transmission Date: 20140711
  Serious: Yes (Hospitalization, Disabling, Other)
  Sender: FDA-Public Use
  Company Number: US-ACTELION-A-NJ2013-81812

PATIENT
  Age: 73 Year
  Sex: Female

DRUGS (2)
  1. TRACLEER [Suspect]
     Indication: PULMONARY ARTERIAL HYPERTENSION
     Dosage: UNK
     Route: 048
     Dates: end: 20130712
  2. COUMADIN [Concomitant]

REACTIONS (11)
  - Thrombosis [Unknown]
  - Cardiac septal defect [Unknown]
  - Cardiac septal defect repair [Unknown]
  - Stent placement [Unknown]
  - Dyspnoea [Unknown]
  - Cerebrovascular accident [Unknown]
  - Asthenia [Unknown]
  - Loss of consciousness [Unknown]
  - Dizziness [Unknown]
  - Contusion [Unknown]
  - Malaise [Unknown]
